FAERS Safety Report 6190415-6 (Version None)
Quarter: 2009Q2

REPORT INFORMATION
  Report Type: 
  Country: None (occurrence: None)
  Receive Date: 20090514
  Receipt Date: 20090511
  Transmission Date: 20091009
  Serious: Yes (Death, Other)
  Sender: FDA-Public Use
  Company Number: BR-BRISTOL-MYERS SQUIBB COMPANY-14607642

PATIENT
  Age: 78 Year
  Sex: Female

DRUGS (2)
  1. SPRYCEL [Suspect]
     Indication: CHRONIC MYELOID LEUKAEMIA
     Dosage: 2 TABLETS
     Dates: end: 20090427
  2. ANTIDIABETIC PRODUCT [Concomitant]
     Indication: DIABETES MELLITUS
     Dosage: TO REDUCE GLUCOSE
     Route: 048

REACTIONS (2)
  - ACUTE PULMONARY OEDEMA [None]
  - FATIGUE [None]
